FAERS Safety Report 12769180 (Version 1)
Quarter: 2016Q3

REPORT INFORMATION
  Report Type: Spontaneous
  Country: FR (occurrence: FR)
  Receive Date: 20160921
  Receipt Date: 20160921
  Transmission Date: 20161109
  Serious: Yes (Other)
  Sender: FDA-Public Use
  Company Number: FR-009507513-1603FRA007695

PATIENT
  Age: 34 Year
  Sex: Female
  Weight: 59 kg

DRUGS (6)
  1. ADALAT [Suspect]
     Active Substance: NIFEDIPINE
     Indication: THREATENED LABOUR
     Dosage: 30 MG, BID
     Dates: start: 20160315, end: 20160324
  2. LOVENOX [Suspect]
     Active Substance: ENOXAPARIN SODIUM
     Indication: METHYLENETETRAHYDROFOLATE REDUCTASE GENE MUTATION
     Dosage: 4000 IU/DAY
     Route: 058
     Dates: start: 20151015
  3. CELESTENE CHRONODOSE [Suspect]
     Active Substance: BETAMETHASONE
     Indication: PROPHYLAXIS
     Dosage: 12 NG, QD
     Route: 030
     Dates: start: 20160315, end: 20160316
  4. ADALAT [Suspect]
     Active Substance: NIFEDIPINE
     Indication: THREATENED LABOUR
     Dosage: 10 MG, 4 TIMES WITHIN ONE HOUR
     Dates: start: 20160315
  5. SPASFON [Suspect]
     Active Substance: PHLOROGLUCINOL
     Indication: UTERINE CONTRACTIONS DURING PREGNANCY
     Dosage: 160 MG, TID
     Dates: start: 20160328
  6. CELESTENE CHRONODOSE [Suspect]
     Active Substance: BETAMETHASONE
     Indication: MATERNAL THERAPY TO ENHANCE FOETAL LUNG MATURITY
     Dosage: UNK
     Route: 030
     Dates: start: 20160412, end: 20160413

REACTIONS (3)
  - Drug prescribing error [Unknown]
  - Caesarean section [Recovered/Resolved]
  - Exposure during pregnancy [Recovered/Resolved]

NARRATIVE: CASE EVENT DATE: 20160315
